FAERS Safety Report 8050738-2 (Version None)
Quarter: 2012Q1

REPORT INFORMATION
  Report Type: 
  Country: None (occurrence: None)
  Receive Date: 20120117
  Receipt Date: 20120117
  Transmission Date: 20120608
  Serious: Yes (Other)
  Sender: FDA-Public Use
  Company Number: None

PATIENT
  Age: 48 Year
  Sex: Female
  Weight: 40.823 kg

DRUGS (2)
  1. PROMETRIUM [Suspect]
     Indication: PROPHYLAXIS
     Dosage: 1 CAPULE
     Route: 048
     Dates: start: 20120104, end: 20120119
  2. PROMETRIUM [Suspect]
     Indication: UTERINE POLYP
     Dosage: 1 CAPULE
     Route: 048
     Dates: start: 20120104, end: 20120119

REACTIONS (1)
  - HEADACHE [None]
